FAERS Safety Report 9639206 (Version 4)
Quarter: 2014Q2

REPORT INFORMATION
  Report Type: Report from Study
  Country: AU (occurrence: AU)
  Receive Date: 20131022
  Receipt Date: 20140402
  Transmission Date: 20141212
  Serious: Yes (Other)
  Sender: FDA-Public Use
  Company Number: AU-ROCHE-1287927

PATIENT
  Age: 67 Year
  Sex: Female

DRUGS (2)
  1. ACTEMRA [Suspect]
     Indication: RHEUMATOID ARTHRITIS
     Route: 042
     Dates: start: 20110831
  2. ACTEMRA [Suspect]
     Route: 042
     Dates: start: 20130811

REACTIONS (7)
  - Hypertension [Recovering/Resolving]
  - Vertigo [Unknown]
  - Chest pain [Unknown]
  - Vomiting [Recovering/Resolving]
  - Nausea [Unknown]
  - Conjunctivitis [Recovering/Resolving]
  - Fatigue [Unknown]
